FAERS Safety Report 16552575 (Version 1)
Quarter: 2019Q3

REPORT INFORMATION
  Report Type: Spontaneous
  Country: US (occurrence: US)
  Receive Date: 20190709
  Receipt Date: 20190709
  Transmission Date: 20191004
  Serious: Yes (Other)
  Sender: FDA-Public Use
  Company Number: None

PATIENT
  Sex: Female
  Weight: 94.8 kg

DRUGS (3)
  1. B12 COMPLEX [Concomitant]
  2. ADDERALL [Concomitant]
     Active Substance: AMPHETAMINE ASPARTATE\AMPHETAMINE SULFATE\DEXTROAMPHETAMINE SACCHARATE\DEXTROAMPHETAMINE SULFATE
  3. TRIAMCINOLONE ACETONIDE. [Suspect]
     Active Substance: TRIAMCINOLONE ACETONIDE

REACTIONS (14)
  - Vertigo [None]
  - Blood corticotrophin decreased [None]
  - Mood swings [None]
  - Hypertension [None]
  - Dizziness [None]
  - Menstruation irregular [None]
  - Hyperhidrosis [None]
  - Weight increased [None]
  - Alopecia [None]
  - Blood cholesterol increased [None]
  - Swelling face [None]
  - Cortisol decreased [None]
  - Lipohypertrophy [None]
  - Self esteem decreased [None]

NARRATIVE: CASE EVENT DATE: 20190705
